FAERS Safety Report 14831676 (Version 1)
Quarter: 2018Q2

REPORT INFORMATION
  Report Type: Spontaneous
  Country: US (occurrence: US)
  Receive Date: 20180408
  Receipt Date: 20180408
  Transmission Date: 20180711
  Serious: Yes (Disabling, Other)
  Sender: FDA-Public Use
  Company Number: None

PATIENT
  Age: 57 Year
  Sex: Female
  Weight: 99 kg

DRUGS (11)
  1. CIPRO [Suspect]
     Active Substance: CIPROFLOXACIN HYDROCHLORIDE
     Indication: INFECTION
     Route: 048
     Dates: start: 19930301, end: 20171230
  2. SOMA [Concomitant]
     Active Substance: CARISOPRODOL
  3. LETROZOLE. [Concomitant]
     Active Substance: LETROZOLE
  4. ZOLPIDEM [Concomitant]
     Active Substance: ZOLPIDEM\ZOLPIDEM TARTRATE
  5. COQ10 [Concomitant]
     Active Substance: UBIDECARENONE
  6. WOMEN^S MULTI [Concomitant]
  7. OMEPRAZOLE. [Concomitant]
     Active Substance: OMEPRAZOLE
  8. PROBIOTICS [Concomitant]
     Active Substance: PROBIOTICS NOS
  9. KRILL OIL [Concomitant]
     Active Substance: DIETARY SUPPLEMENT
  10. VITAMIN D [Concomitant]
     Active Substance: CHOLECALCIFEROL
  11. TRAMADOL. [Concomitant]
     Active Substance: TRAMADOL

REACTIONS (9)
  - Arthralgia [None]
  - Meniscus injury [None]
  - Hallucination [None]
  - Tendon rupture [None]
  - Arthritis [None]
  - Psoriasis [None]
  - Pain [None]
  - Insomnia [None]
  - Rotator cuff syndrome [None]

NARRATIVE: CASE EVENT DATE: 19940415
